FAERS Safety Report 4752075-8 (Version None)
Quarter: 2005Q3

REPORT INFORMATION
  Report Type: 
  Country: None (occurrence: None)
  Receive Date: 20050822
  Receipt Date: 20050714
  Transmission Date: 20060218
  Serious: No
  Sender: FDA-Public Use
  Company Number: PHEH2005US07832

PATIENT
  Age: 55 Year
  Sex: Male

DRUGS (4)
  1. ZELNORM [Suspect]
     Indication: CONSTIPATION
     Dosage: 6 MG, ONCE/SINGLE, ORAL
     Route: 048
     Dates: start: 20050713
  2. FUROSEMIDE [Concomitant]
  3. ACTOS (PIOGLITAZONE, PIOGLITAZONE HYDROCHLORIDE) [Concomitant]
  4. COZAAR [Concomitant]

REACTIONS (4)
  - ASTHENIA [None]
  - DYSPNOEA [None]
  - FEELING JITTERY [None]
  - NERVOUSNESS [None]
